FAERS Safety Report 17841036 (Version 2)
Quarter: 2020Q2

REPORT INFORMATION
  Report Type: Spontaneous
  Country: US (occurrence: US)
  Receive Date: 20200529
  Receipt Date: 20200603
  Transmission Date: 20200714
  Serious: No
  Sender: FDA-Public Use
  Company Number: US-PFIZER INC-2020210090

PATIENT
  Age: 65 Year
  Sex: Female

DRUGS (1)
  1. XELJANZ XR [Suspect]
     Active Substance: TOFACITINIB CITRATE
     Indication: RHEUMATOID ARTHRITIS
     Dosage: 11 MG, 1X/DAY
     Route: 048
     Dates: start: 202003, end: 20200526

REACTIONS (6)
  - Fatigue [Not Recovered/Not Resolved]
  - Bone pain [Unknown]
  - Decreased appetite [Not Recovered/Not Resolved]
  - Musculoskeletal pain [Unknown]
  - Somnolence [Unknown]
  - Laziness [Unknown]

NARRATIVE: CASE EVENT DATE: 2020
